FAERS Safety Report 5532043-9 (Version None)
Quarter: 2007Q4

REPORT INFORMATION
  Report Type: 
  Country: None (occurrence: None)
  Receive Date: 20071203
  Receipt Date: 20071126
  Transmission Date: 20080405
  Serious: Yes (Other)
  Sender: FDA-Public Use
  Company Number: A0696884A

PATIENT
  Age: 65 Year
  Sex: Female

DRUGS (6)
  1. AVANDIA [Suspect]
     Indication: DRUG USE FOR UNKNOWN INDICATION
     Dosage: 8MG PER DAY
     Route: 048
  2. GLUCONORM [Concomitant]
  3. LEVOTHYROXINE SODIUM [Concomitant]
  4. METOPROLOL [Concomitant]
  5. PANTOPRAZOLE SODIUM [Concomitant]
  6. PREMARIN [Concomitant]

REACTIONS (2)
  - DYSPNOEA [None]
  - OEDEMA PERIPHERAL [None]
